FAERS Safety Report 19892956 (Version 1)
Quarter: 2021Q3

REPORT INFORMATION
  Report Type: Spontaneous
  Country: CA (occurrence: CA)
  Receive Date: 20210928
  Receipt Date: 20210928
  Transmission Date: 20211014
  Serious: Yes (Other)
  Sender: FDA-Public Use
  Company Number: CA-TEVA-2021-CA-1959100

PATIENT
  Age: 73 Year
  Sex: Male

DRUGS (7)
  1. INSULIN REGULAR [Concomitant]
     Active Substance: INSULIN NOS
  2. HEPARIN SODIUM, PORCINE [Concomitant]
     Active Substance: HEPARIN SODIUM
     Route: 065
  3. ZAXINE [Suspect]
     Active Substance: RIFAXIMIN
     Indication: HEPATIC ENCEPHALOPATHY
     Route: 048
  4. ENOXAPARIN [Concomitant]
     Active Substance: ENOXAPARIN
  5. ESOMEPRAZOLE. [Suspect]
     Active Substance: ESOMEPRAZOLE MAGNESIUM
     Route: 048
  6. LACTULOSE SYRUP [Concomitant]
     Active Substance: LACTULOSE
  7. FOLIC ACID. [Concomitant]
     Active Substance: FOLIC ACID

REACTIONS (3)
  - Pancytopenia [Unknown]
  - Leukopenia [Unknown]
  - Neutropenia [Unknown]
